FAERS Safety Report 6130604-X (Version None)
Quarter: 2009Q1

REPORT INFORMATION
  Report Type: 
  Country: None (occurrence: None)
  Receive Date: 20090325
  Receipt Date: 20090316
  Transmission Date: 20090719
  Serious: Yes (Hospitalization, Other)
  Sender: FDA-Public Use
  Company Number: PHHY2009JP06826

PATIENT
  Sex: Male
  Weight: 70 kg

DRUGS (7)
  1. GLEEVEC [Suspect]
     Indication: CHRONIC MYELOID LEUKAEMIA
     Dosage: 400 MG DAILY
     Route: 048
     Dates: start: 20081104, end: 20081223
  2. GLEEVEC [Suspect]
     Dosage: 300 MG DAILY
     Route: 048
     Dates: start: 20081224, end: 20090205
  3. AMARYL [Concomitant]
     Indication: DIABETES MELLITUS
     Dosage: 1 MG
     Route: 048
     Dates: start: 20090129
  4. NORVASC [Concomitant]
     Indication: HYPERTENSION
     Dosage: 10 MG
     Route: 048
     Dates: start: 20030423, end: 20090303
  5. BLOPRESS [Concomitant]
     Indication: HYPERTENSION
     Dosage: 8 MG
     Route: 048
     Dates: start: 20070125, end: 20090303
  6. LASIX [Concomitant]
     Indication: OEDEMA
     Dosage: 20 MG DAILY
     Route: 048
     Dates: start: 20081203
  7. LASIX [Concomitant]
     Dosage: 40 MG DAILY
     Route: 048
     Dates: start: 20081224, end: 20090305

REACTIONS (6)
  - ASPIRATION PLEURAL CAVITY [None]
  - BLOOD PH DECREASED [None]
  - GENERALISED OEDEMA [None]
  - PERICARDIAL EFFUSION [None]
  - PLEURAL EFFUSION [None]
  - PO2 DECREASED [None]
